FAERS Safety Report 14982271 (Version 3)
Quarter: 2020Q3

REPORT INFORMATION
  Report Type: Spontaneous
  Country: US (occurrence: US)
  Receive Date: 20180607
  Receipt Date: 20200716
  Transmission Date: 20201102
  Serious: No
  Sender: FDA-Public Use
  Company Number: US-BIOGEN-2018BI00591496

PATIENT
  Age: 36 Year
  Sex: Male

DRUGS (5)
  1. TECFIDERA [Suspect]
     Active Substance: DIMETHYL FUMARATE
     Indication: MULTIPLE SCLEROSIS
     Route: 050
     Dates: start: 20180524
  2. TECFIDERA [Suspect]
     Active Substance: DIMETHYL FUMARATE
     Route: 050
     Dates: start: 20180825
  3. TECFIDERA [Suspect]
     Active Substance: DIMETHYL FUMARATE
     Dosage: STARTING DOSE
     Route: 050
     Dates: start: 2018, end: 2018
  4. VITAMIN D [Concomitant]
     Active Substance: VITAMIN D NOS
     Route: 050
  5. TECFIDERA [Suspect]
     Active Substance: DIMETHYL FUMARATE
     Dosage: MAINTENANCE DOSE
     Route: 050
     Dates: start: 2018

REACTIONS (3)
  - Product dose omission issue [Recovered/Resolved]
  - Hypersomnia [Recovered/Resolved]
  - Flushing [Not Recovered/Not Resolved]

NARRATIVE: CASE EVENT DATE: 20180910
